FAERS Safety Report 12722862 (Version 2)
Quarter: 2016Q3

REPORT INFORMATION
  Report Type: Spontaneous
  Country: IT (occurrence: IT)
  Receive Date: 20160907
  Receipt Date: 20160914
  Transmission Date: 20161109
  Serious: Yes (Hospitalization)
  Sender: FDA-Public Use
  Company Number: IT-ASTRAZENECA-2016SE85801

PATIENT
  Age: 23842 Day
  Sex: Male
  Weight: 75 kg

DRUGS (9)
  1. CRESTOR [Suspect]
     Active Substance: ROSUVASTATIN CALCIUM
     Indication: HYPERCHOLESTEROLAEMIA
     Route: 048
     Dates: start: 20150101, end: 20160802
  2. CRESTOR [Suspect]
     Active Substance: ROSUVASTATIN CALCIUM
     Indication: HYPERCHOLESTEROLAEMIA
     Route: 048
  3. CIPRALEX [Suspect]
     Active Substance: ESCITALOPRAM OXALATE
     Indication: DEPRESSION
     Dosage: 20 MG/ML ORAL DROPS, DAILY
     Route: 048
     Dates: start: 20160715, end: 20160727
  4. OMEPRAZOLE. [Concomitant]
     Active Substance: OMEPRAZOLE
     Dosage: 20.0MG UNKNOWN
     Route: 048
  5. GLUCOPHAGE [Concomitant]
     Active Substance: METFORMIN HYDROCHLORIDE
     Indication: TYPE 2 DIABETES MELLITUS
     Dosage: 1000.0MG UNKNOWN
     Route: 048
     Dates: start: 20110101, end: 20160802
  6. METFORMIN [Concomitant]
     Active Substance: METFORMIN HYDROCHLORIDE
  7. STILIDEN [Suspect]
     Active Substance: PAROXETINE HYDROCHLORIDE
     Indication: DEPRESSION
     Route: 048
  8. DIAMOX SEQUELS [Suspect]
     Active Substance: ACETAZOLAMIDE
     Indication: EAR DISORDER
     Route: 048
     Dates: start: 20160715, end: 20160725
  9. STILIDEN [Suspect]
     Active Substance: PAROXETINE HYDROCHLORIDE
     Indication: DEPRESSION
     Dosage: 10 MG/ML ORAL DROPS, DAILY
     Route: 048
     Dates: start: 20160715, end: 20160802

REACTIONS (4)
  - Blood glucose increased [Unknown]
  - Thrombocytopenia [Recovered/Resolved with Sequelae]
  - Gingival bleeding [Recovered/Resolved with Sequelae]
  - Petechiae [Recovered/Resolved with Sequelae]

NARRATIVE: CASE EVENT DATE: 20160724
